FAERS Safety Report 22242859 (Version 1)
Quarter: 2023Q2

REPORT INFORMATION
  Report Type: Spontaneous
  Country: GB (occurrence: None)
  Receive Date: 20230421
  Receipt Date: 20230421
  Transmission Date: 20230722
  Serious: No
  Sender: FDA-Public Use
  Company Number: None

PATIENT
  Sex: Female

DRUGS (2)
  1. NEUTROGENA INVISIBLE DAILY DEFENSE SUNSCREEN BROAD SPECTRUM SPF 30 [Suspect]
     Active Substance: AVOBENZONE\HOMOSALATE\OCTISALATE\OCTOCRYLENE
     Indication: Prophylaxis against solar radiation
     Dosage: OTHER STRENGTH : SPF;?OTHER QUANTITY : 3.0 FL OZ;?
     Route: 061
     Dates: start: 20230418, end: 20230419
  2. DESOGESTREL [Concomitant]
     Active Substance: DESOGESTREL

REACTIONS (4)
  - Application site erythema [None]
  - Application site pruritus [None]
  - Swelling face [None]
  - Swelling of eyelid [None]
